FAERS Safety Report 19330525 (Version 2)
Quarter: 2021Q3

REPORT INFORMATION
  Report Type: Report from Study
  Country: US (occurrence: US)
  Receive Date: 20210528
  Receipt Date: 20210913
  Transmission Date: 20211014
  Serious: Yes (Other)
  Sender: FDA-Public Use
  Company Number: US-TAKEDA-US202030926

PATIENT
  Sex: Female

DRUGS (2)
  1. COVID?19 VACCINE NOS. [Suspect]
     Active Substance: COVID-19 VACCINE NOS
     Indication: PRODUCT USED FOR UNKNOWN INDICATION
     Route: 065
  2. CUVITRU [Suspect]
     Active Substance: HUMAN IMMUNOGLOBULIN G
     Indication: PRIMARY IMMUNODEFICIENCY SYNDROME
     Dosage: UNK, UNKNOWN
     Route: 065

REACTIONS (9)
  - Deafness [Unknown]
  - Anxiety [Unknown]
  - Fatigue [Unknown]
  - Stress [Unknown]
  - Vertigo [Unknown]
  - Inner ear inflammation [Unknown]
  - Inability to afford medication [Unknown]
  - Vaccination complication [Unknown]
  - Infusion site swelling [Unknown]
